FAERS Safety Report 12778377 (Version 1)
Quarter: 2016Q3

REPORT INFORMATION
  Report Type: Spontaneous
  Country: US (occurrence: US)
  Receive Date: 20160926
  Receipt Date: 20160926
  Transmission Date: 20161109
  Serious: Yes (Other)
  Sender: FDA-Public Use
  Company Number: US-JNJFOC-20160920962

PATIENT
  Age: 46 Year
  Sex: Female
  Weight: 70.31 kg

DRUGS (1)
  1. LISTERINE TOTAL CARE STAIN REMOVER ANTI CAVITY FRESHMINT [Suspect]
     Active Substance: SODIUM FLUORIDE
     Indication: DENTAL DISORDER PROPHYLAXIS
     Dosage: HALF A CAPFUL, 2X DAILY, MORNING AND NIGHT
     Route: 048
     Dates: start: 20160909, end: 20160909

REACTIONS (4)
  - Oral mucosal blistering [Recovering/Resolving]
  - Oral pain [Recovering/Resolving]
  - Chemical burn of gastrointestinal tract [Recovering/Resolving]
  - Oedema mouth [Recovering/Resolving]

NARRATIVE: CASE EVENT DATE: 20160909
